FAERS Safety Report 5990630-8 (Version None)
Quarter: 2008Q4

REPORT INFORMATION
  Report Type: 
  Country: None (occurrence: None)
  Receive Date: 20081211
  Receipt Date: 20081205
  Transmission Date: 20090506
  Serious: Yes (Hospitalization, Other)
  Sender: FDA-Public Use
  Company Number: B0549639A

PATIENT
  Age: 57 Year
  Sex: Female

DRUGS (4)
  1. CEFUROXIME [Suspect]
     Route: 065
  2. FLOXACILLIN SODIUM [Suspect]
     Route: 065
  3. ERYTHROMYCIN [Suspect]
     Route: 065
  4. TAZOCIN [Suspect]
     Route: 042

REACTIONS (10)
  - ABDOMINAL DISTENSION [None]
  - BLOOD ALBUMIN DECREASED [None]
  - C-REACTIVE PROTEIN INCREASED [None]
  - CLOSTRIDIUM DIFFICILE COLITIS [None]
  - DIARRHOEA [None]
  - ENTEROCOLITIS INFECTIOUS [None]
  - NEUTROPHILIA [None]
  - PNEUMONIA KLEBSIELLA [None]
  - PYREXIA [None]
  - WHITE BLOOD CELL COUNT INCREASED [None]
